FAERS Safety Report 8399910-2 (Version None)
Quarter: 2012Q2

REPORT INFORMATION
  Report Type: 
  Country: None (occurrence: None)
  Receive Date: 20120531
  Receipt Date: 20120521
  Transmission Date: 20120825
  Serious: Yes (Other)
  Sender: FDA-Public Use
  Company Number: US-ELI_LILLY_AND_COMPANY-US201110002007

PATIENT
  Sex: Female
  Weight: 73 kg

DRUGS (14)
  1. FORTEO [Suspect]
     Dosage: 20 UG, QD
     Route: 058
  2. CALTRATE                           /00751519/ [Concomitant]
     Dosage: 1 DF, BID
     Route: 048
  3. HYDROMORPHONE HCL [Concomitant]
     Route: 048
  4. FLU [Concomitant]
     Dosage: UNK
     Dates: start: 20120112
  5. FORTEO [Suspect]
     Dosage: 20 UG, QD
     Route: 058
  6. TIZANIDINE [Concomitant]
     Dosage: 1 DF, TID
  7. GABAPENTIN [Concomitant]
     Route: 048
  8. CYMBALTA [Concomitant]
     Indication: DEPRESSION
     Dosage: 1 DF, QD
  9. EXALGO [Concomitant]
     Indication: PAIN
     Dosage: 1 DF, TID
     Route: 048
  10. MULTI-VITAMIN [Concomitant]
     Dosage: 1 DF, UNK
     Route: 048
  11. FORTEO [Suspect]
     Dosage: 20 UG, QD
     Route: 058
  12. WELLBUTRIN [Concomitant]
     Indication: DEPRESSION
     Route: 048
  13. FORTEO [Suspect]
     Indication: OSTEOPOROSIS
     Dosage: 20 UG, QD
     Route: 058
     Dates: start: 20111001
  14. CYMBALTA [Concomitant]
     Dosage: 2 DF, QD
     Route: 048

REACTIONS (17)
  - ARTHRALGIA [None]
  - VISION BLURRED [None]
  - JOINT SWELLING [None]
  - BONE PAIN [None]
  - INJURY [None]
  - SPINAL FRACTURE [None]
  - MYALGIA [None]
  - WHITE BLOOD CELL COUNT DECREASED [None]
  - DIZZINESS [None]
  - AMNESIA [None]
  - BUNION [None]
  - BONE MARROW DISORDER [None]
  - ONYCHOCLASIS [None]
  - CONCUSSION [None]
  - JOINT CREPITATION [None]
  - NAIL DISCOLOURATION [None]
  - HEADACHE [None]
